FAERS Safety Report 6232516-X (Version None)
Quarter: 2009Q2

REPORT INFORMATION
  Report Type: 
  Country: None (occurrence: None)
  Receive Date: 20090617
  Receipt Date: 20090615
  Transmission Date: 20091009
  Serious: Yes (Other)
  Sender: FDA-Public Use
  Company Number: US-ASTRAZENECA-2009UW15168

PATIENT
  Age: 68 Year
  Sex: Male

DRUGS (3)
  1. CRESTOR [Suspect]
     Route: 048
     Dates: start: 20081101, end: 20081201
  2. EXFORGE [Concomitant]
     Dosage: 5/160 MCG
  3. AMINO ACID INJ [Concomitant]

REACTIONS (2)
  - MUSCULAR WEAKNESS [None]
  - SUICIDAL IDEATION [None]
